FAERS Safety Report 12882879 (Version 1)
Quarter: 2016Q4

REPORT INFORMATION
  Report Type: Spontaneous
  Country: US (occurrence: US)
  Receive Date: 20161025
  Receipt Date: 20161025
  Transmission Date: 20170207
  Serious: No
  Sender: FDA-Public Use
  Company Number: US-ACTAVIS-2016-05076

PATIENT

DRUGS (1)
  1. GUANFACINE (AELLC) [Suspect]
     Active Substance: GUANFACINE
     Indication: PRODUCT USED FOR UNKNOWN INDICATION
     Dosage: UNK, UNKNOWN
     Route: 065

REACTIONS (6)
  - Lethargy [Unknown]
  - Decreased activity [Unknown]
  - Product substitution issue [Unknown]
  - Insomnia [Unknown]
  - Abdominal discomfort [Unknown]
  - Psychomotor hyperactivity [Unknown]
